FAERS Safety Report 11785734 (Version 2)
Quarter: 2015Q4

REPORT INFORMATION
  Report Type: Spontaneous
  Country: US (occurrence: US)
  Receive Date: 20151130
  Receipt Date: 20151202
  Transmission Date: 20160305
  Serious: Yes (Other)
  Sender: FDA-Public Use
  Company Number: US-PFIZER INC-2015395623

PATIENT
  Age: 78 Year
  Sex: Male

DRUGS (6)
  1. BICALUTAMIDE. [Interacting]
     Active Substance: BICALUTAMIDE
     Indication: PROSTATE CANCER METASTATIC
     Dosage: UNK
  2. DRONEDARONE [Interacting]
     Active Substance: DRONEDARONE
     Dosage: UNK
  3. CARVEDILOL. [Interacting]
     Active Substance: CARVEDILOL
     Dosage: UNK
  4. LEUPRORELIN [Concomitant]
     Active Substance: LEUPROLIDE ACETATE
     Indication: PROSTATE CANCER METASTATIC
     Dosage: UNK
  5. DOCETAXEL. [Suspect]
     Active Substance: DOCETAXEL
     Indication: PROSTATE CANCER METASTATIC
     Dosage: 75 MG/M2, TOTAL DOSE = 134 MG EVERY 3 WEEKS
  6. DOCETAXEL. [Interacting]
     Active Substance: DOCETAXEL
     Dosage: 30 MG/M2, TOTAL DOSE 54 MG WEEKLY

REACTIONS (2)
  - Cholangitis sclerosing [Unknown]
  - Drug interaction [Unknown]
